FAERS Safety Report 5238300-8 (Version None)
Quarter: 2007Q1

REPORT INFORMATION
  Report Type: 
  Country: None (occurrence: None)
  Receive Date: 20070215
  Receipt Date: 20070205
  Transmission Date: 20070707
  Serious: Yes (Other)
  Sender: FDA-Public Use
  Company Number: PHRM2006FR03406

PATIENT
  Age: 30 Year
  Sex: Female
  Weight: 67 kg

DRUGS (2)
  1. MUCICLAR [Concomitant]
     Dosage: 1 DF/D/21 D/MONTH
     Route: 048
  2. NEORAL [Suspect]
     Indication: PSORIASIS
     Dosage: 200 MG DAILY
     Route: 048
     Dates: start: 20061207, end: 20061209

REACTIONS (5)
  - ANAPHYLACTOID REACTION [None]
  - BURNING SENSATION MUCOSAL [None]
  - FEELING HOT [None]
  - MALAISE [None]
  - PERIPHERAL COLDNESS [None]
